FAERS Safety Report 15675000 (Version 1)
Quarter: 2018Q4

REPORT INFORMATION
  Report Type: Spontaneous
  Country: US (occurrence: US)
  Receive Date: 20181129
  Receipt Date: 20181129
  Transmission Date: 20190205
  Serious: Yes (Hospitalization, Other)
  Sender: FDA-Public Use
  Company Number: None

PATIENT
  Age: 54 Year
  Sex: Male
  Weight: 74.25 kg

DRUGS (1)
  1. LOSARTAN 100/25 [Suspect]
     Active Substance: HYDROCHLOROTHIAZIDE\LOSARTAN POTASSIUM
     Indication: HYPERTENSION
     Dosage: ?          QUANTITY:1 TABLET(S);?
     Route: 048
     Dates: start: 20171101, end: 20180708

REACTIONS (2)
  - Lung neoplasm malignant [None]
  - Loss of consciousness [None]

NARRATIVE: CASE EVENT DATE: 20180708
